FAERS Safety Report 14406909 (Version 2)
Quarter: 2018Q1

REPORT INFORMATION
  Report Type: Report from Study
  Country: CA (occurrence: CA)
  Receive Date: 20180118
  Receipt Date: 20180316
  Transmission Date: 20180509
  Serious: Yes (Death)
  Sender: FDA-Public Use
  Company Number: CA-HLSUS-2018-CA-000115

PATIENT
  Age: 80 Year
  Sex: Female

DRUGS (8)
  1. CELEXA [Concomitant]
     Active Substance: CITALOPRAM HYDROBROMIDE
     Dosage: 1 TABLET 20 MG DAILY IN THE MORNING
  2. GLUCOPHAGE [Concomitant]
     Active Substance: METFORMIN HYDROCHLORIDE
     Dosage: HALF TABLET (250MG), 2 DAILY IN THE MORNING AND AT DINER
  3. EXELON [Concomitant]
     Active Substance: RIVASTIGMINE TARTRATE
     Dosage: 1 PATCH (9.5MG) X 1 DAILY IN THE MORNIG. KEEP IN PLACE FOR 24HRS
     Route: 051
  4. ATACAND [Concomitant]
     Active Substance: CANDESARTAN CILEXETIL
     Dosage: 1 TABLET 16 MG DAILY IN THE MORNING
  5. SYNTHROID [Concomitant]
     Active Substance: LEVOTHYROXINE SODIUM
     Dosage: 1 TABLET (0.075MG) 1 DAILY IN THE MORNING
  6. FERODAN [Concomitant]
     Dosage: ONCE DAILY AT MID DAILY
  7. SINEMET [Concomitant]
     Active Substance: CARBIDOPA\LEVODOPA
     Dosage: 1 TABLET (100/25) 4 DAILY
  8. CLOZARIL [Suspect]
     Active Substance: CLOZAPINE
     Dosage: 12.5 MG AT BED TIME (HALF TABLET)
     Route: 048
     Dates: start: 20111026, end: 20180111

REACTIONS (2)
  - Pneumonia [Fatal]
  - Impaired self-care [Unknown]
